FAERS Safety Report 23492836 (Version 2)
Quarter: 2024Q1

REPORT INFORMATION
  Report Type: Report from Study
  Country: US (occurrence: US)
  Receive Date: 20240207
  Receipt Date: 20240215
  Transmission Date: 20240409
  Serious: Yes (Hospitalization, Other)
  Sender: FDA-Public Use
  Company Number: US-TAKEDA-2024TUS010378

PATIENT
  Sex: Male
  Weight: 39.7 kg

DRUGS (13)
  1. TEDUGLUTIDE [Suspect]
     Active Substance: TEDUGLUTIDE
     Indication: Short-bowel syndrome
     Dosage: 0.05 MILLIGRAM/KILOGRAM
     Route: 065
     Dates: start: 20230602, end: 20230701
  2. TEDUGLUTIDE [Suspect]
     Active Substance: TEDUGLUTIDE
     Indication: Short-bowel syndrome
     Dosage: 0.05 MILLIGRAM/KILOGRAM
     Route: 065
     Dates: start: 20230602, end: 20230701
  3. TEDUGLUTIDE [Suspect]
     Active Substance: TEDUGLUTIDE
     Indication: Short-bowel syndrome
     Dosage: 0.05 MILLIGRAM/KILOGRAM
     Route: 065
     Dates: start: 20230602, end: 20230701
  4. TEDUGLUTIDE [Suspect]
     Active Substance: TEDUGLUTIDE
     Indication: Short-bowel syndrome
     Dosage: 0.05 MILLIGRAM/KILOGRAM
     Route: 065
     Dates: start: 20230602, end: 20230701
  5. TEDUGLUTIDE [Suspect]
     Active Substance: TEDUGLUTIDE
     Dosage: 1.8 MILLILITER, QD
     Route: 058
     Dates: end: 20230701
  6. TEDUGLUTIDE [Suspect]
     Active Substance: TEDUGLUTIDE
     Dosage: 1.8 MILLILITER, QD
     Route: 058
     Dates: end: 20230701
  7. TEDUGLUTIDE [Suspect]
     Active Substance: TEDUGLUTIDE
     Dosage: 1.8 MILLILITER, QD
     Route: 058
     Dates: end: 20230701
  8. TEDUGLUTIDE [Suspect]
     Active Substance: TEDUGLUTIDE
     Dosage: 1.8 MILLILITER, QD
     Route: 058
     Dates: end: 20230701
  9. BACTRIM [Concomitant]
     Active Substance: SULFAMETHOXAZOLE\TRIMETHOPRIM
     Indication: Gastrointestinal bacterial overgrowth
     Dosage: 200 MILLIGRAM, BID
     Dates: start: 2018
  10. BACTRIM [Concomitant]
     Active Substance: SULFAMETHOXAZOLE\TRIMETHOPRIM
     Dosage: 40 MILLIGRAM, BID
  11. METRONIDAZOLE [Concomitant]
     Active Substance: METRONIDAZOLE
     Indication: Gastrointestinal bacterial overgrowth
     Dosage: 250 MILLIGRAM, BID
     Dates: start: 2017
  12. LOPERAMIDE [Concomitant]
     Active Substance: LOPERAMIDE
     Indication: Frequent bowel movements
     Dosage: 2 MILLIGRAM, TID
     Dates: start: 2011
  13. CHOLECALCIFEROL [Concomitant]
     Active Substance: CHOLECALCIFEROL
     Indication: Parenteral nutrition
     Dosage: 50000 INTERNATIONAL UNIT, 3/WEEK
     Dates: start: 2010

REACTIONS (5)
  - Gastrointestinal haemorrhage [Recovering/Resolving]
  - Haematochezia [Unknown]
  - Haemoglobin decreased [Unknown]
  - Anastomotic ulcer [Unknown]
  - Gastrointestinal anastomotic complication [Unknown]
